FAERS Safety Report 7644633-8 (Version None)
Quarter: 2011Q3

REPORT INFORMATION
  Report Type: 
  Country: None (occurrence: None)
  Receive Date: 20110729
  Receipt Date: 20110720
  Transmission Date: 20111222
  Serious: Yes (Other)
  Sender: FDA-Public Use
  Company Number: US-AMGEN-USASP2011037106

PATIENT
  Age: 97 Year
  Sex: Female

DRUGS (2)
  1. PROLIA [Suspect]
     Indication: OSTEOPOROSIS POSTMENOPAUSAL
     Dates: start: 20110719
  2. VITAMIN D [Concomitant]

REACTIONS (4)
  - NAUSEA [None]
  - VOMITING [None]
  - BONE PAIN [None]
  - ABDOMINAL PAIN [None]
